FAERS Safety Report 18285279 (Version 2)
Quarter: 2020Q4

REPORT INFORMATION
  Report Type: Spontaneous
  Country: US (occurrence: US)
  Receive Date: 20200918
  Receipt Date: 20201231
  Transmission Date: 20210113
  Serious: Yes (Hospitalization, Other)
  Sender: FDA-Public Use
  Company Number: US-TEVA-2020-US-1829067

PATIENT
  Age: 59 Year
  Sex: Male

DRUGS (4)
  1. VALSARTAN ACETERIS [Suspect]
     Active Substance: VALSARTAN
     Indication: HYPERTENSION
     Dosage: DOSAGE: 160 MG
     Route: 065
     Dates: start: 20161003, end: 20161012
  2. VALSARTAN ACETERIS [Suspect]
     Active Substance: VALSARTAN
     Dosage: DOSAGE: 320 MG
     Route: 065
     Dates: start: 20161012, end: 20161211
  3. VALSARTAN ACETERIS [Suspect]
     Active Substance: VALSARTAN
     Dosage: DOSAGE: 160 MG
     Route: 065
     Dates: start: 20161211, end: 20180706
  4. VALSARTAN AUROBINDO [Suspect]
     Active Substance: VALSARTAN
     Indication: HYPERTENSION
     Dosage: DOSAGE: 160 MG
     Route: 065
     Dates: start: 20190222, end: 20190419

REACTIONS (2)
  - Prostate cancer [Not Recovered/Not Resolved]
  - Bone cancer [Not Recovered/Not Resolved]
